FAERS Safety Report 8833044 (Version 1)
Quarter: 2012Q4

REPORT INFORMATION
  Report Type: 
  Country: US (occurrence: US)
  Receive Date: 20121010
  Receipt Date: 20121010
  Transmission Date: 20130627
  Serious: No
  Sender: FDA-Public Use
  Company Number: US-009507513-1210USA001961

PATIENT
  Age: 20 Year
  Sex: Female
  Weight: 49.89 kg

DRUGS (3)
  1. NEXPLANON [Suspect]
     Indication: CONTRACEPTION
     Dosage: frequency: every 3 years
     Route: 059
     Dates: start: 201208
  2. SINGULAIR [Concomitant]
     Indication: ASTHMA
  3. ALLEGRA [Concomitant]

REACTIONS (1)
  - Menorrhagia [Unknown]
